FAERS Safety Report 9910277 (Version 2)
Quarter: 2014Q2

REPORT INFORMATION
  Report Type: Spontaneous
  Country: US (occurrence: US)
  Receive Date: 20140219
  Receipt Date: 20140425
  Transmission Date: 20141212
  Serious: Yes (Hospitalization, Other)
  Sender: FDA-Public Use
  Company Number: US-ASTRAZENECA-2014SE09880

PATIENT
  Age: 88 Year
  Sex: Female
  Weight: 54.4 kg

DRUGS (6)
  1. LISINOPRIL [Suspect]
     Route: 048
  2. SYMBICORT [Suspect]
     Indication: CHRONIC OBSTRUCTIVE PULMONARY DISEASE
     Dosage: 160/4.5 MCG, 2 PUFFS BID
     Route: 055
     Dates: start: 2006
  3. PROCARDIA [Concomitant]
     Indication: HEART RATE ABNORMAL
  4. WATER PILL [Concomitant]
     Indication: SWELLING
  5. MELOXICAM [Concomitant]
     Indication: ARTHRALGIA
  6. MELOXICAM [Concomitant]
     Indication: SWELLING

REACTIONS (11)
  - Hip fracture [Unknown]
  - Pneumonia [Unknown]
  - Thyroid cancer recurrent [Unknown]
  - Thyroid disorder [Unknown]
  - Dyspnoea [Unknown]
  - Osteoporosis [Unknown]
  - Malaise [Unknown]
  - Body height decreased [Unknown]
  - Osteopenia [Unknown]
  - Intentional product misuse [Unknown]
  - Drug dose omission [Unknown]
